FAERS Safety Report 19092254 (Version 1)
Quarter: 2021Q2

REPORT INFORMATION
  Report Type: Report from Study
  Country: AR (occurrence: AR)
  Receive Date: 20210405
  Receipt Date: 20210405
  Transmission Date: 20210717
  Serious: Yes (Other)
  Sender: FDA-Public Use
  Company Number: NVSC2021AR053338

PATIENT
  Sex: Male

DRUGS (4)
  1. METFORMIN [Concomitant]
     Active Substance: METFORMIN HYDROCHLORIDE
     Indication: DIABETES MELLITUS
     Dosage: 1000 MG, BID (IN THE MORNING AND AT NIGHT)
     Route: 065
     Dates: start: 2006
  2. JANUVIA [Concomitant]
     Active Substance: SITAGLIPTIN PHOSPHATE
     Indication: DIABETES MELLITUS
     Dosage: STARTED ONE YEAR AGO
     Route: 065
  3. EXFORGE [Suspect]
     Active Substance: AMLODIPINE BESYLATE\VALSARTAN
     Indication: HYPERTENSION
     Dosage: 1 DF, QD
     Route: 065
  4. DIUREX [Concomitant]
     Indication: PRODUCT USED FOR UNKNOWN INDICATION
     Dosage: UNK
     Route: 065

REACTIONS (12)
  - Arthritis [Unknown]
  - Somnolence [Unknown]
  - Feeling abnormal [Unknown]
  - Joint dislocation [Unknown]
  - Tibia fracture [Unknown]
  - Joint stiffness [Not Recovered/Not Resolved]
  - Gait inability [Unknown]
  - Dysstasia [Unknown]
  - Ligament injury [Unknown]
  - Fall [Unknown]
  - Arthralgia [Unknown]
  - Osteoarthritis [Unknown]
